FAERS Safety Report 8446892-0 (Version None)
Quarter: 2012Q2

REPORT INFORMATION
  Report Type: 
  Country: None (occurrence: None)
  Receive Date: 20120323
  Receipt Date: 20110906
  Transmission Date: 20120825
  Serious: Yes (Other)
  Sender: FDA-Public Use
  Company Number: 163-21880-11091022

PATIENT
  Age: 91 Year
  Sex: Female
  Weight: 53.0709 kg

DRUGS (2)
  1. OXYGEN (OXYGEN) [Concomitant]
  2. REVLIMID [Suspect]
     Indication: LYMPHOMA
     Dosage: 5 MG, DAILY FOR 28 DAYS, PO
     Route: 048
     Dates: start: 20080828

REACTIONS (2)
  - CARDIAC FAILURE [None]
  - DYSPNOEA [None]
